FAERS Safety Report 4357203-4 (Version None)
Quarter: 2004Q2

REPORT INFORMATION
  Report Type: 
  Country: None (occurrence: None)
  Receive Date: 20040507
  Receipt Date: 20040427
  Transmission Date: 20050107
  Serious: Yes (Other)
  Sender: FDA-Public Use
  Company Number: 2004028529

PATIENT
  Sex: Male

DRUGS (1)
  1. PROCARDIA [Suspect]
     Indication: BLOOD PRESSURE INCREASED
     Dosage: 10 MG (ONCE), SUBLINGUAL
     Route: 060

REACTIONS (1)
  - CARDIAC ARREST [None]
